FAERS Safety Report 9395907 (Version 1)
Quarter: 2013Q3

REPORT INFORMATION
  Report Type: Spontaneous
  Country: NL (occurrence: None)
  Receive Date: 20130708
  Receipt Date: 20130708
  Transmission Date: 20140515
  Serious: Yes (Other)
  Sender: FDA-Public Use
  Company Number: AUR-APL-2013-05732

PATIENT
  Age: 7 Decade
  Sex: Female

DRUGS (6)
  1. CLARITHROMYCIN [Suspect]
     Indication: PRODUCT USED FOR UNKNOWN INDICATION
     Dosage: 500 MG, 1 IN 1 D
  2. ROSUVASTATIN [Suspect]
     Indication: PRODUCT USED FOR UNKNOWN INDICATION
     Dosage: 5 MG, 1 IN 1 D
  3. BUDESONIDE [Concomitant]
  4. FORMOTEROL [Concomitant]
  5. RISEDRONATE [Concomitant]
  6. LEVOTHYROXINE [Concomitant]

REACTIONS (2)
  - Angioedema [None]
  - Myalgia [None]
